FAERS Safety Report 8475910-9 (Version None)
Quarter: 2012Q2

REPORT INFORMATION
  Report Type: 
  Country: None (occurrence: None)
  Receive Date: 20120628
  Receipt Date: 20120619
  Transmission Date: 20120825
  Serious: Yes (Other)
  Sender: FDA-Public Use
  Company Number: CA-JNJFOC-20120609442

PATIENT
  Sex: Male
  Weight: 80.5 kg

DRUGS (2)
  1. SOLU-CORTEF [Concomitant]
     Route: 042
  2. REMICADE [Suspect]
     Indication: COLITIS ULCERATIVE
     Route: 042
     Dates: start: 20120607

REACTIONS (2)
  - FALL [None]
  - HIP FRACTURE [None]
